FAERS Safety Report 10080460 (Version 2)
Quarter: 2014Q2

REPORT INFORMATION
  Report Type: Spontaneous
  Country: FR (occurrence: FR)
  Receive Date: 20140416
  Receipt Date: 20140505
  Transmission Date: 20141212
  Serious: Yes (Death)
  Sender: FDA-Public Use
  Company Number: FR-BEH-2014041874

PATIENT
  Age: 66 Year
  Sex: Female

DRUGS (3)
  1. INTRAVENOUS IMMUNOGLOBULINS [Suspect]
     Indication: PARANEOPLASTIC SYNDROME
  2. STEROIDS [Suspect]
     Indication: PARANEOPLASTIC SYNDROME
  3. CYCLOPHOSPHAMIDE [Suspect]
     Indication: PARANEOPLASTIC SYNDROME

REACTIONS (1)
  - Drug ineffective for unapproved indication [Fatal]
